FAERS Safety Report 4401267-6 (Version None)
Quarter: 2004Q3

REPORT INFORMATION
  Report Type: 
  Country: None (occurrence: None)
  Receive Date: 20040907
  Receipt Date: 20040129
  Transmission Date: 20050211
  Serious: No
  Sender: FDA-Public Use
  Company Number: US-BRISTOL-MYERS SQUIBB COMPANY-12491205

PATIENT
  Age: 64 Year
  Sex: Male
  Weight: 81 kg

DRUGS (3)
  1. COUMADIN [Suspect]
     Indication: ATRIAL FIBRILLATION
     Dosage: 5 MG X 2 DAYS, 2.5 MG X 3 DAYS
     Route: 048
     Dates: start: 20031201
  2. LIPITOR [Concomitant]
     Route: 048
  3. PRILOSEC [Concomitant]
     Route: 048

REACTIONS (2)
  - ABDOMINAL PAIN [None]
  - INTERNATIONAL NORMALISED RATIO ABNORMAL [None]
